FAERS Safety Report 15172942 (Version 3)
Quarter: 2019Q2

REPORT INFORMATION
  Report Type: Report from Study
  Country: US (occurrence: US)
  Receive Date: 20180720
  Receipt Date: 20190624
  Transmission Date: 20190711
  Serious: No
  Sender: FDA-Public Use
  Company Number: PHEH2018US028348

PATIENT
  Sex: Female

DRUGS (1)
  1. ENTRESTO [Suspect]
     Active Substance: SACUBITRIL\VALSARTAN
     Indication: CARDIAC FAILURE
     Dosage: UNK UNK, BID
     Route: 048

REACTIONS (6)
  - Mouth swelling [Unknown]
  - Confusional state [Unknown]
  - Lip swelling [Unknown]
  - Amnesia [Unknown]
  - Eye disorder [Unknown]
  - Aggression [Unknown]
